FAERS Safety Report 4789610-X (Version None)
Quarter: 2005Q4

REPORT INFORMATION
  Report Type: 
  Country: None (occurrence: None)
  Receive Date: 20051004
  Receipt Date: 20050920
  Transmission Date: 20060501
  Serious: Yes (Hospitalization, Other)
  Sender: FDA-Public Use
  Company Number: USA0506100038

PATIENT
  Age: 67 Year
  Sex: Female
  Weight: 85 kg

DRUGS (4)
  1. FORTEO [Suspect]
     Indication: OSTEOPOROSIS
     Dosage: 20 UG DAY
     Dates: start: 20050401, end: 20050531
  2. ASPIRIN [Concomitant]
  3. NITROGLYCERIN [Concomitant]
  4. SYNTHROID [Concomitant]

REACTIONS (11)
  - APNOEA [None]
  - ASTHENIA [None]
  - CHEST PAIN [None]
  - FATIGUE [None]
  - HIATUS HERNIA [None]
  - HYPERTRIGLYCERIDAEMIA [None]
  - INFECTION [None]
  - INGUINAL HERNIA [None]
  - MICROLITHIASIS [None]
  - PANCREATITIS ACUTE [None]
  - PHARMACEUTICAL PRODUCT COMPLAINT [None]
